FAERS Safety Report 15010678 (Version 1)
Quarter: 2018Q2

REPORT INFORMATION
  Report Type: Spontaneous
  Country: US (occurrence: US)
  Receive Date: 20180614
  Receipt Date: 20180614
  Transmission Date: 20180711
  Serious: Yes (Other)
  Sender: FDA-Public Use
  Company Number: US-UNITED THERAPEUTICS-UNT-2018-008202

PATIENT
  Sex: Male
  Weight: 87.98 kg

DRUGS (2)
  1. REMODULIN [Suspect]
     Active Substance: TREPROSTINIL
     Indication: PULMONARY ARTERIAL HYPERTENSION
     Dosage: 0.011 ?G/KG, CONTINUING
     Route: 041
     Dates: start: 20180320
  2. REMODULIN [Suspect]
     Active Substance: TREPROSTINIL
     Dosage: 0.012 ?G/KG, CONTINUING
     Route: 041

REACTIONS (8)
  - Fluid retention [Unknown]
  - Blister rupture [Unknown]
  - Pain in jaw [Unknown]
  - Discharge [Unknown]
  - Headache [Unknown]
  - Weight increased [Unknown]
  - Blister [Unknown]
  - Deafness [Unknown]

NARRATIVE: CASE EVENT DATE: 20180605
